FAERS Safety Report 8003412-2 (Version None)
Quarter: 2011Q4

REPORT INFORMATION
  Report Type: 
  Country: None (occurrence: None)
  Receive Date: 20111222
  Receipt Date: 20111221
  Transmission Date: 20120403
  Serious: Yes (Life-Threatening)
  Sender: FDA-Public Use
  Company Number: DK-ABBOTT-11P-044-0846477-00

PATIENT
  Sex: Female
  Weight: 25 kg

DRUGS (1)
  1. HUMIRA [Suspect]
     Indication: RHEUMATOID ARTHRITIS
     Dates: start: 20061018, end: 20110810

REACTIONS (2)
  - LUNG INFILTRATION [None]
  - PNEUMONIA [None]
